FAERS Safety Report 18554853 (Version 1)
Quarter: 2020Q4

REPORT INFORMATION
  Report Type: Spontaneous
  Country: CH (occurrence: CH)
  Receive Date: 20201127
  Receipt Date: 20201127
  Transmission Date: 20210114
  Serious: Yes (Death, Life-Threatening, Hospitalization, Other)
  Sender: FDA-Public Use
  Company Number: NVSC2020CH314282

PATIENT
  Age: 90 Year
  Sex: Male

DRUGS (8)
  1. ELIQUIS [Concomitant]
     Active Substance: APIXABAN
     Indication: PRODUCT USED FOR UNKNOWN INDICATION
     Dosage: 2.5 MG, Q12H (1-0-1-0) (UNKNOWN START OF THERAPY, PERMANENT THERAPY PLANNED UNTIL FURTHER NOTICE)
     Route: 048
  2. TORASEMIDE [Concomitant]
     Active Substance: TORSEMIDE
     Indication: PRODUCT USED FOR UNKNOWN INDICATION
     Dosage: 5 MG, QD (1-0-0-0)  (UNKNOWN START OF THERAPY, PERMANENT THERAPY PLANNED UNTIL FURTHER NOTICE)
     Route: 048
  3. METO ZEROK [Concomitant]
     Active Substance: METOPROLOL SUCCINATE
     Indication: PRODUCT USED FOR UNKNOWN INDICATION
     Dosage: 25 MG, QD (1-0-0-0) (UNKNOWN START OF THERAPY, PERMANENT THERAPY PLANNED UNTIL FURTHER NOTICE)
     Route: 048
  4. PASPERTIN [Concomitant]
     Indication: PRODUCT USED FOR UNKNOWN INDICATION
     Dosage: 20 DRP, Q8H (20 DROP, Q8H (NUMBER OF DROPS: 20-20-20-0) (INGREDIENT (METOCLOPRAMIDE HYDROCHLORIDE):
     Route: 065
  5. ROSUVASTATIN SANDOZ [Suspect]
     Active Substance: ROSUVASTATIN CALCIUM
     Indication: PRODUCT USED FOR UNKNOWN INDICATION
     Dosage: 10 MG, QD (INGREDIENT (ROSUVASTATIN CALCIUM): 5MG)
     Route: 065
     Dates: start: 20200204, end: 20200910
  6. DAFALGAN [Suspect]
     Active Substance: ACETAMINOPHEN
     Indication: PRODUCT USED FOR UNKNOWN INDICATION
     Dosage: 500 MG, Q12H
     Route: 048
     Dates: start: 20200709, end: 20200910
  7. PANTOPRAZOLUM [Concomitant]
     Active Substance: PANTOPRAZOLE
     Indication: PRODUCT USED FOR UNKNOWN INDICATION
     Dosage: 40 MG, QD (0-0-1-0) (UNKNOWN START OF THERAPY, PERMANENT THERAPY PLANNED UNTIL FURTHER)
     Route: 048
  8. ARLEVERT [Concomitant]
     Active Substance: CINNARIZINE\DIMENHYDRINATE
     Indication: PRODUCT USED FOR UNKNOWN INDICATION
     Dosage: UNK (20MG/40MG) Q8H (1-1-1-0)  (UNKNOWN START OF THERAPY, CURRENTLY PAUSED, RESUMPTION DEPENDING ON
     Route: 048

REACTIONS (1)
  - Drug-induced liver injury [Fatal]

NARRATIVE: CASE EVENT DATE: 20200910
